FAERS Safety Report 17577041 (Version 4)
Quarter: 2020Q2

REPORT INFORMATION
  Report Type: Spontaneous
  Country: DE (occurrence: DE)
  Receive Date: 20200324
  Receipt Date: 20200605
  Transmission Date: 20200713
  Serious: Yes (Other)
  Sender: FDA-Public Use
  Company Number: DE-US-PROVELL PHARMACEUTICALS LLC-E2B_90076004

PATIENT
  Age: 59 Year
  Sex: Female
  Weight: 87 kg

DRUGS (5)
  1. VITAMIN D                          /00107901/ [Concomitant]
     Active Substance: ERGOCALCIFEROL
     Indication: VITAMIN D DEFICIENCY
  2. EUTHYROX [Suspect]
     Active Substance: LEVOTHYROXINE SODIUM
     Dosage: READJUSTED AGAIN AND AGAIN
  3. EUTHYROX [Suspect]
     Active Substance: LEVOTHYROXINE SODIUM
     Indication: AUTOIMMUNE THYROIDITIS
     Dosage: OLD FORMULATION-DIFFERENT DOSAGES
  4. EUTHYROX [Suspect]
     Active Substance: LEVOTHYROXINE SODIUM
     Dosage: NEW FORMULATION STARTED IN APR 2020
  5. EUTHYROX [Suspect]
     Active Substance: LEVOTHYROXINE SODIUM

REACTIONS (16)
  - Diabetes mellitus [Recovering/Resolving]
  - Gastrointestinal disorder [Recovered/Resolved]
  - Tri-iodothyronine free abnormal [Unknown]
  - Nausea [Unknown]
  - Tachycardia [Unknown]
  - Thyroxine free abnormal [Unknown]
  - Blood thyroid stimulating hormone abnormal [Unknown]
  - Mineral deficiency [Recovering/Resolving]
  - Visual impairment [Unknown]
  - Hypokalaemia [Unknown]
  - Magnesium deficiency [Unknown]
  - Reaction to excipient [Unknown]
  - Arrhythmia [Unknown]
  - Abdominal pain upper [Unknown]
  - Muscle spasms [Unknown]
  - Autoimmune hepatitis [Unknown]

NARRATIVE: CASE EVENT DATE: 2020
